FAERS Safety Report 4709104-7 (Version None)
Quarter: 2005Q3

REPORT INFORMATION
  Report Type: 
  Country: None (occurrence: None)
  Receive Date: 20050705
  Receipt Date: 20050505
  Transmission Date: 20060218
  Serious: Yes (Disabling, Other)
  Sender: FDA-Public Use
  Company Number: 2005019428

PATIENT
  Age: 66 Year
  Sex: Male

DRUGS (6)
  1. LIPITOR [Suspect]
     Indication: BLOOD CHOLESTEROL INCREASED
     Dosage: 10 MG (10 MG, 1 IN 1 D), ORAL
     Route: 048
     Dates: start: 20031001, end: 20040914
  2. NEURONTIN [Suspect]
     Indication: TRIGEMINAL NEURALGIA
     Dosage: 600 MG (1 IN 1 D), ORAL
     Route: 048
     Dates: start: 20040714, end: 20040914
  3. ATENOLOL [Suspect]
     Indication: ILL-DEFINED DISORDER
     Dosage: 50 MG (1 IN 1 D), ORAL
     Route: 048
     Dates: start: 20030101
  4. TEGRETOL [Suspect]
     Indication: TRIGEMINAL NEURALGIA
     Dosage: 200 MG (1 IN 1 D), ORAL
     Route: 048
     Dates: start: 20040524, end: 20040713
  5. LISINOPRIL [Concomitant]
  6. HYDROCHLOROTHIAZIDE [Concomitant]

REACTIONS (7)
  - ATRIAL FIBRILLATION [None]
  - HEADACHE [None]
  - MALAISE [None]
  - RASH GENERALISED [None]
  - THERAPY NON-RESPONDER [None]
  - TREATMENT NONCOMPLIANCE [None]
  - TRIGEMINAL NEURALGIA [None]
